FAERS Safety Report 4898652-5 (Version None)
Quarter: 2006Q1

REPORT INFORMATION
  Report Type: 
  Country: None (occurrence: None)
  Receive Date: 20060202
  Receipt Date: 20060123
  Transmission Date: 20060701
  Serious: Yes (Other)
  Sender: FDA-Public Use
  Company Number: 2006AC00175

PATIENT
  Age: 46 Year
  Sex: Male

DRUGS (3)
  1. XYLOCAINE [Suspect]
     Indication: LOCAL ANAESTHESIA
     Route: 056
  2. XYLOCAINE [Suspect]
     Dosage: 5 MINUTES AFTER FIRST DOSE
     Route: 056
  3. BUPIVACAINE [Suspect]
     Indication: LOCAL ANAESTHESIA
     Route: 053

REACTIONS (7)
  - CONFUSIONAL STATE [None]
  - DEAFNESS BILATERAL [None]
  - DYSARTHRIA [None]
  - HYPERTENSION [None]
  - INCORRECT ROUTE OF DRUG ADMINISTRATION [None]
  - RESPIRATORY DEPRESSION [None]
  - TACHYCARDIA [None]
